FAERS Safety Report 6199632-2 (Version None)
Quarter: 2009Q2

REPORT INFORMATION
  Report Type: 
  Country: None (occurrence: None)
  Receive Date: 20090522
  Receipt Date: 20090131
  Transmission Date: 20091009
  Serious: No
  Sender: FDA-Public Use
  Company Number: A0767187A

PATIENT
  Sex: Male

DRUGS (1)
  1. BACTROBAN [Suspect]
     Indication: DRUG USE FOR UNKNOWN INDICATION
     Dosage: 1APP UNKNOWN
     Route: 061
     Dates: start: 20040101

REACTIONS (6)
  - ABNORMAL BEHAVIOUR [None]
  - DRUG HYPERSENSITIVITY [None]
  - EMOTIONAL DISTRESS [None]
  - ILL-DEFINED DISORDER [None]
  - MOOD SWINGS [None]
  - PANIC ATTACK [None]
